FAERS Safety Report 10947773 (Version 5)
Quarter: 2015Q3

REPORT INFORMATION
  Report Type: Report from Study
  Country: NL (occurrence: NL)
  Receive Date: 20150324
  Receipt Date: 20150817
  Transmission Date: 20151125
  Serious: Yes (Other)
  Sender: FDA-Public Use
  Company Number: NL-ROCHE-1554388

PATIENT
  Age: 49 Year
  Sex: Male
  Weight: 85 kg

DRUGS (3)
  1. AMLODIPINE [Concomitant]
     Active Substance: AMLODIPINE BESYLATE
     Indication: HYPERTENSION
     Dosage: EVERY DAY
     Route: 048
     Dates: start: 20140513
  2. BEVACIZUMAB [Suspect]
     Active Substance: BEVACIZUMAB
     Indication: GLIOBLASTOMA
     Dosage: ON 3/MAR/2014, LAST DOSE PRIOR TO SAE.
     Route: 042
     Dates: start: 20140303
  3. LOMUSTINE. [Suspect]
     Active Substance: LOMUSTINE
     Indication: GLIOBLASTOMA
     Dosage: ON 3/MAR/2014, LAST DOSE PRIOR TO SAE.
     Route: 048
     Dates: start: 20140303

REACTIONS (2)
  - Proteinuria [Recovering/Resolving]
  - Portal hypertension [Recovering/Resolving]

NARRATIVE: CASE EVENT DATE: 20141223
